FAERS Safety Report 9558530 (Version 1)
Quarter: 2013Q3

REPORT INFORMATION
  Report Type: Spontaneous
  Country: US (occurrence: US)
  Receive Date: 20130926
  Receipt Date: 20130926
  Transmission Date: 20140515
  Serious: Yes (Other)
  Sender: FDA-Public Use
  Company Number: US-BAXTER-2013BAX036360

PATIENT
  Age: 76 Year
  Sex: Female

DRUGS (4)
  1. OSMITROL INJECTION (MANNITOL INJECTION, USP) [Suspect]
     Indication: ANGLE CLOSURE GLAUCOMA
     Route: 042
  2. ACETAZOLAMIDE [Concomitant]
     Indication: ANGLE CLOSURE GLAUCOMA
     Route: 042
  3. PILOCARPINE [Concomitant]
     Indication: ANGLE CLOSURE GLAUCOMA
     Route: 047
  4. SOLUMEDROL [Concomitant]
     Indication: ANGLE CLOSURE GLAUCOMA
     Route: 042

REACTIONS (1)
  - Nephropathy toxic [Recovered/Resolved]
